FAERS Safety Report 5680208-8 (Version None)
Quarter: 2008Q1

REPORT INFORMATION
  Report Type: 
  Country: None (occurrence: None)
  Receive Date: 20080326
  Receipt Date: 20080317
  Transmission Date: 20080703
  Serious: Yes (Hospitalization)
  Sender: FDA-Public Use
  Company Number: PHEH2008US02662

PATIENT
  Age: 86 Year
  Sex: Female

DRUGS (10)
  1. RECLAST [Suspect]
     Indication: OSTEOPOROSIS POSTMENOPAUSAL
     Dosage: 5 MG, EVERY YEAR
     Dates: start: 20080305
  2. OMEPRAZOLE [Concomitant]
     Indication: GASTROOESOPHAGEAL REFLUX DISEASE
     Dosage: 20 MG, QD
  3. PAROXETINE HCL [Concomitant]
     Indication: DEPRESSION
     Dosage: 30 MG, QD
  4. ASPIRIN [Concomitant]
     Dosage: 81 MG, QD
  5. COLACE [Concomitant]
     Dosage: 100 MG, QD
  6. COREG [Concomitant]
     Dosage: 3.125 MG, BID
  7. PLAVIX [Concomitant]
     Dosage: 75 MG, QD
  8. DARVOCET-N [Concomitant]
     Indication: PAIN
     Dosage: 100 MG, Q4H PRN
  9. CALCIUM WITH VITAMIN D [Concomitant]
     Dosage: 600 MG, BID
  10. CALCIUM WITH VITAMIN D [Concomitant]
     Dosage: 600 MG, TID
     Dates: start: 20080308

REACTIONS (10)
  - ARTHRALGIA [None]
  - ASTHENIA [None]
  - BLOOD CALCIUM DECREASED [None]
  - BONE PAIN [None]
  - ELECTROLYTE IMBALANCE [None]
  - FATIGUE [None]
  - HYPERTENSION [None]
  - HYPOPHOSPHATAEMIA [None]
  - MOVEMENT DISORDER [None]
  - SYNCOPE [None]
